FAERS Safety Report 9580799 (Version 1)
Quarter: 2013Q4

REPORT INFORMATION
  Report Type: Spontaneous
  Country: GB (occurrence: GB)
  Receive Date: 20131002
  Receipt Date: 20131002
  Transmission Date: 20140711
  Serious: Yes (Life-Threatening, Hospitalization)
  Sender: FDA-Public Use
  Company Number: GB-PFIZER INC-2013279226

PATIENT
  Age: 67 Year
  Sex: Male

DRUGS (6)
  1. PREGABALIN [Suspect]
     Indication: NEURALGIA
     Dosage: 225 MG, 2X/DAY
     Route: 048
     Dates: start: 20130625, end: 20130904
  2. BACLOFEN [Concomitant]
     Indication: NEURALGIA
     Dosage: 10 MG, 3X/DAY
     Route: 048
  3. OMEPRAZOLE [Concomitant]
     Indication: GASTROOESOPHAGEAL REFLUX DISEASE
     Dosage: 40 MG, 1X/DAY
     Route: 048
     Dates: start: 20050324, end: 20130904
  4. FYBOGEL [Concomitant]
     Indication: CONSTIPATION
     Dosage: 1 SACHET  ONCE PER DAY AT NIGHT
     Route: 048
     Dates: start: 20050324
  5. CEFALEXIN [Concomitant]
     Indication: URINARY TRACT INFECTION
     Dosage: 250 MG, 1X/DAY AT NIGHT.
     Route: 048
  6. BISACODYL [Concomitant]
     Indication: CONSTIPATION
     Dosage: UNK
     Route: 054

REACTIONS (1)
  - Hyponatraemia [Recovering/Resolving]
